FAERS Safety Report 9026867 (Version 1)
Quarter: 2013Q1

REPORT INFORMATION
  Report Type: Report from Study
  Country: US (occurrence: US)
  Receive Date: 20130123
  Receipt Date: 20130123
  Transmission Date: 20140127
  Serious: No
  Sender: FDA-Public Use
  Company Number: US-VERTEX PHARMACEUTICALS INC.-2013-000934

PATIENT
  Sex: Female
  Weight: 68 kg

DRUGS (4)
  1. VX-950 (TELAPREVIR) [Suspect]
     Indication: HEPATITIS C
     Dosage: 750 MG, TID
     Route: 048
     Dates: start: 20121010
  2. PEGASYS [Suspect]
     Indication: HEPATITIS C
     Dosage: 180 ?G, QW
     Route: 058
     Dates: start: 20121010
  3. RIBAPAK [Suspect]
     Indication: HEPATITIS C
     Dosage: 600 MG AM AND 400 MG PM, BID
     Route: 048
     Dates: start: 20121010
  4. SUBOXONE [Concomitant]
     Dosage: 12 MG, QD
     Route: 048

REACTIONS (1)
  - Insomnia [Not Recovered/Not Resolved]
